FAERS Safety Report 19828064 (Version 1)
Quarter: 2021Q3

REPORT INFORMATION
  Report Type: Spontaneous
  Country: FR (occurrence: FR)
  Receive Date: 20210914
  Receipt Date: 20210914
  Transmission Date: 20211014
  Serious: Yes (Hospitalization, Congenital Anomaly, Other)
  Sender: FDA-Public Use
  Company Number: FR-ABBVIE-16P-056-1589539-00

PATIENT
  Sex: Female

DRUGS (2)
  1. ALEPSAL (CAFFEINE\PHENOBARBITAL) [Suspect]
     Active Substance: CAFFEINE\PHENOBARBITAL
     Indication: MATERNAL EXPOSURE TIMING UNSPECIFIED
     Route: 064
  2. DEPAKINE [Suspect]
     Active Substance: VALPROATE SODIUM
     Indication: MATERNAL EXPOSURE TIMING UNSPECIFIED
     Route: 064

REACTIONS (34)
  - Tympanosclerosis [Unknown]
  - Hypoacusis [Unknown]
  - Anxiety [Unknown]
  - Speech sound disorder [Unknown]
  - Aphasia [Unknown]
  - Personal relationship issue [Unknown]
  - Mental disorder [Unknown]
  - Tympanic membrane perforation [Unknown]
  - Eating disorder [Unknown]
  - Eustachian tube disorder [Unknown]
  - Learning disorder [Unknown]
  - Educational problem [Unknown]
  - Nasal disorder [Unknown]
  - Ear disorder [Unknown]
  - Disorientation [Unknown]
  - Low birth weight baby [Unknown]
  - Psychiatric symptom [Unknown]
  - Dysphonia [Unknown]
  - Retrognathia [Unknown]
  - Depression [Unknown]
  - Tooth disorder [Unknown]
  - Foetal exposure during pregnancy [Unknown]
  - Congenital neurological disorder [Not Recovered/Not Resolved]
  - Musculoskeletal chest pain [Unknown]
  - Pharyngeal disorder [Unknown]
  - Congenital anomaly of inner ear [Recovered/Resolved with Sequelae]
  - Congenital astigmatism [Not Recovered/Not Resolved]
  - Cleft lip and palate [Recovered/Resolved with Sequelae]
  - Disturbance in attention [Unknown]
  - Kyphosis [Unknown]
  - Dysmorphism [Unknown]
  - Dyspraxia [Unknown]
  - Balance disorder [Unknown]
  - Nose deformity [Unknown]

NARRATIVE: CASE EVENT DATE: 1986
